FAERS Safety Report 5956545-6 (Version None)
Quarter: 2008Q4

REPORT INFORMATION
  Report Type: 
  Country: None (occurrence: None)
  Receive Date: 20081117
  Receipt Date: 20081117
  Transmission Date: 20090506
  Serious: Yes (Other)
  Sender: FDA-Public Use
  Company Number: None

PATIENT
  Sex: Female

DRUGS (1)
  1. RISPERDAL [Suspect]

REACTIONS (4)
  - CONFUSIONAL STATE [None]
  - DROOLING [None]
  - GAIT DISTURBANCE [None]
  - INCONTINENCE [None]
